FAERS Safety Report 10570650 (Version 2)
Quarter: 2014Q4

REPORT INFORMATION
  Report Type: Report from Study
  Country: CL (occurrence: CL)
  Receive Date: 20141107
  Receipt Date: 20141127
  Transmission Date: 20150529
  Serious: Yes (Death, Other)
  Sender: FDA-Public Use
  Company Number: PHHY2014CL145562

PATIENT
  Age: 42 Year
  Sex: Female

DRUGS (1)
  1. GLIVEC [Suspect]
     Active Substance: IMATINIB MESYLATE
     Indication: GASTROINTESTINAL STROMAL TUMOUR
     Dosage: 400 MG, UNK
     Route: 065

REACTIONS (4)
  - Death [Fatal]
  - Bladder cancer [Unknown]
  - Second primary malignancy [Unknown]
  - Vomiting [Unknown]

NARRATIVE: CASE EVENT DATE: 20141005
